FAERS Safety Report 13380091 (Version 1)
Quarter: 2017Q1

REPORT INFORMATION
  Report Type: Spontaneous
  Country: US (occurrence: US)
  Receive Date: 20170328
  Receipt Date: 20170328
  Transmission Date: 20170429
  Serious: Yes (Hospitalization)
  Sender: FDA-Public Use
  Company Number: US-VIFOR (INTERNATIONAL) INC.-VIT-2017-03143

PATIENT
  Age: 70 Year
  Sex: Male

DRUGS (14)
  1. LANTUS [Concomitant]
     Active Substance: INSULIN GLARGINE
  2. GLIPIZIDE. [Concomitant]
     Active Substance: GLIPIZIDE
  3. METOPROLOL. [Concomitant]
     Active Substance: METOPROLOL
  4. ACETYLSALICYLIC ACID [Concomitant]
     Active Substance: ASPIRIN
  5. LATANOPROST. [Concomitant]
     Active Substance: LATANOPROST
  6. NOVOLOG [Concomitant]
     Active Substance: INSULIN ASPART
  7. VELTASSA [Suspect]
     Active Substance: PATIROMER
     Indication: HYPERKALAEMIA
     Route: 048
     Dates: start: 20161202
  8. ESCITALOPRAM [Concomitant]
     Active Substance: ESCITALOPRAM OXALATE
  9. FAMOTIDINE. [Concomitant]
     Active Substance: FAMOTIDINE
  10. HUMALOG [Concomitant]
     Active Substance: INSULIN LISPRO
  11. COLECALCIFEROL [Concomitant]
     Active Substance: CHOLECALCIFEROL
  12. CALCITRIOL. [Concomitant]
     Active Substance: CALCITRIOL
  13. CENTRUM [Concomitant]
     Active Substance: VITAMINS
  14. LOSARTAN. [Concomitant]
     Active Substance: LOSARTAN

REACTIONS (2)
  - Arterial repair [Recovered/Resolved]
  - Drug dose omission [Recovered/Resolved]

NARRATIVE: CASE EVENT DATE: 201703
